FAERS Safety Report 12287542 (Version 1)
Quarter: 2016Q2

REPORT INFORMATION
  Report Type: Spontaneous
  Country: US (occurrence: US)
  Receive Date: 20160420
  Receipt Date: 20160420
  Transmission Date: 20160815
  Serious: Yes (Life-Threatening, Other)
  Sender: FDA-Public Use
  Company Number: US-BION-20160020

PATIENT
  Age: 26 Year
  Sex: Male

DRUGS (1)
  1. LOPERAMIDE UNKNOWN PRODUCT [Suspect]
     Active Substance: LOPERAMIDE
     Indication: DIARRHOEA
     Dosage: INGESTED UP TO 192?MG OF LOPERAMIDE

REACTIONS (3)
  - Torsade de pointes [Recovered/Resolved]
  - Cardiac arrest [Recovered/Resolved]
  - Intentional overdose [Recovered/Resolved]
